FAERS Safety Report 15403329 (Version 2)
Quarter: 2018Q4

REPORT INFORMATION
  Report Type: Report from Study
  Country: US (occurrence: US)
  Receive Date: 20180919
  Receipt Date: 20181031
  Transmission Date: 20190204
  Serious: Yes (Death)
  Sender: FDA-Public Use
  Company Number: US-OTSUKA-2018_029472

PATIENT
  Sex: Female
  Weight: 87.53 kg

DRUGS (2)
  1. TOLVAPTAN [Suspect]
     Active Substance: TOLVAPTAN
     Indication: BLOOD SODIUM DECREASED
     Dosage: 15 MG, QD
     Route: 048
     Dates: start: 2018, end: 2018
  2. TOLVAPTAN [Suspect]
     Active Substance: TOLVAPTAN
     Dosage: 15 MG, BID
     Route: 048
     Dates: start: 2018, end: 201808

REACTIONS (9)
  - Death [Fatal]
  - Inappropriate schedule of product administration [Unknown]
  - Drug monitoring procedure not performed [Unknown]
  - Product prescribing error [Unknown]
  - Treatment noncompliance [Unknown]
  - Fluid intake restriction [Not Recovered/Not Resolved]
  - Peripheral swelling [Not Recovered/Not Resolved]
  - Drug ineffective [Unknown]
  - Product dose omission [Unknown]
